FAERS Safety Report 4508954-X (Version None)
Quarter: 2004Q4

REPORT INFORMATION
  Report Type: 
  Country: None (occurrence: None)
  Receive Date: 20041122
  Receipt Date: 20041122
  Transmission Date: 20050328
  Serious: No
  Sender: FDA-Public Use
  Company Number: None

PATIENT
  Age: 58 Year
  Sex: Male

DRUGS (1)
  1. NITROGLYCERIN [Suspect]
     Dosage: 1 PATCH / DAY
     Dates: start: 20041025, end: 20041031

REACTIONS (3)
  - APPLICATION SITE BURNING [None]
  - APPLICATION SITE DISCOLOURATION [None]
  - PHARMACEUTICAL PRODUCT COMPLAINT [None]
